FAERS Safety Report 10023792 (Version 1)
Quarter: 2014Q1

REPORT INFORMATION
  Report Type: Spontaneous
  Country: US (occurrence: None)
  Receive Date: 20140319
  Receipt Date: 20140319
  Transmission Date: 20141002
  Serious: Yes (Hospitalization, Disabling)
  Sender: FDA-Public Use
  Company Number: None

PATIENT
  Age: 74 Year
  Sex: Female

DRUGS (2)
  1. PERMETHRIN [Suspect]
     Indication: LICE INFESTATION
     Dosage: APPLIED TO HAIR (SUFFICIENT QUANITY)
  2. DECADRON [Suspect]
     Indication: ARTHRITIS
     Route: 030

REACTIONS (5)
  - Throat irritation [None]
  - Nasal discomfort [None]
  - Eye irritation [None]
  - Dyspnoea [None]
  - Formication [None]
